FAERS Safety Report 9774813 (Version 1)
Quarter: 2013Q4

REPORT INFORMATION
  Report Type: Spontaneous
  Country: TW (occurrence: TW)
  Receive Date: 20131220
  Receipt Date: 20131220
  Transmission Date: 20140711
  Serious: Yes (Other)
  Sender: FDA-Public Use
  Company Number: TW-009507513-1312TWN005532

PATIENT
  Age: 54 Year
  Sex: Female

DRUGS (3)
  1. TEMOZOLOMIDE [Suspect]
     Indication: GLIOBLASTOMA MULTIFORME
     Dosage: 75 MG/M2, QD
  2. TEMOZOLOMIDE [Suspect]
     Dosage: TMZ MAINTENANCE THERAPY 150 MG/M2, QD, FOR 5 DAYS IN A 28 DAY CYCLE, FOR 8 CYCLES
  3. TEMOZOLOMIDE [Suspect]
     Dosage: 150 MG/M2, QD FOR 5 DAYS IN A 28 DAY CYCLE

REACTIONS (2)
  - Acute lymphocytic leukaemia [Unknown]
  - Radiotherapy [Unknown]
